FAERS Safety Report 5256098-4 (Version None)
Quarter: 2007Q1

REPORT INFORMATION
  Report Type: 
  Country: None (occurrence: None)
  Receive Date: 20070306
  Receipt Date: 20070223
  Transmission Date: 20070707
  Serious: Yes (Other)
  Sender: FDA-Public Use
  Company Number: GB-BAYER-200710250BNE

PATIENT

DRUGS (1)
  1. CIPROFLOXACIN [Suspect]

REACTIONS (1)
  - ADVERSE EVENT [None]
